FAERS Safety Report 7505991-8 (Version None)
Quarter: 2011Q2

REPORT INFORMATION
  Report Type: 
  Country: None (occurrence: None)
  Receive Date: 20110526
  Receipt Date: 20110525
  Transmission Date: 20111010
  Serious: Yes (Other)
  Sender: FDA-Public Use
  Company Number: AU-ROCHE-777927

PATIENT
  Sex: Female

DRUGS (6)
  1. ACTEMRA [Suspect]
     Route: 065
     Dates: start: 20110210
  2. PREDNISOLONE [Concomitant]
  3. METHOTREXATE [Concomitant]
  4. ACTEMRA [Suspect]
     Indication: RHEUMATOID ARTHRITIS
     Dosage: FORM: INFUSION
     Route: 065
     Dates: start: 20110114
  5. ACTEMRA [Suspect]
     Route: 065
     Dates: start: 20110407
  6. ACTEMRA [Suspect]
     Route: 065
     Dates: start: 20110310

REACTIONS (1)
  - MYOCARDIAL INFARCTION [None]
